FAERS Safety Report 9665226 (Version 1)
Quarter: 2013Q4

REPORT INFORMATION
  Report Type: Report from Study
  Country: MX (occurrence: MX)
  Receive Date: 20131101
  Receipt Date: 20131101
  Transmission Date: 20140711
  Serious: Yes (Other)
  Sender: FDA-Public Use
  Company Number: MX-ROCHE-1185892

PATIENT
  Age: 52 Year
  Sex: Female
  Weight: 63 kg

DRUGS (2)
  1. AVASTIN [Suspect]
     Indication: OVARIAN CANCER
     Route: 065
  2. PEGYLATED LIPOSOMAL DOXORUBICIN [Suspect]
     Indication: OVARIAN CANCER
     Route: 065

REACTIONS (4)
  - Pain [Unknown]
  - Febrile neutropenia [Unknown]
  - Vomiting [Unknown]
  - Disease progression [Unknown]
